FAERS Safety Report 13689341 (Version 1)
Quarter: 2017Q2

REPORT INFORMATION
  Report Type: Spontaneous
  Country: US (occurrence: US)
  Receive Date: 20170623
  Receipt Date: 20170623
  Transmission Date: 20170830
  Serious: No
  Sender: FDA-Public Use
  Company Number: None

PATIENT
  Age: 7 Year
  Sex: Male
  Weight: 24.52 kg

DRUGS (2)
  1. EPIPEN JR [Suspect]
     Active Substance: EPINEPHRINE
  2. CLARITIN [Concomitant]
     Active Substance: LORATADINE

REACTIONS (3)
  - Injection site reaction [None]
  - Needle issue [None]
  - Laceration [None]

NARRATIVE: CASE EVENT DATE: 20170621
